FAERS Safety Report 9207333 (Version 2)
Quarter: 2013Q3

REPORT INFORMATION
  Report Type: Spontaneous
  Country: US (occurrence: None)
  Receive Date: 20120817
  Receipt Date: 20130815
  Transmission Date: 20140515
  Serious: Yes (Hospitalization, Other)
  Sender: FDA-Public Use
  Company Number: ADR-2012-00269

PATIENT
  Sex: 0

DRUGS (2)
  1. BACLOFEN [Suspect]
     Indication: NEUROPATHY PERIPHERAL
  2. BACLOFEN [Suspect]
     Indication: PAIN

REACTIONS (3)
  - No therapeutic response [None]
  - Drug intolerance [None]
  - Gait disturbance [None]
